FAERS Safety Report 6339344-5 (Version None)
Quarter: 2009Q3

REPORT INFORMATION
  Report Type: 
  Country: None (occurrence: None)
  Receive Date: 20090903
  Receipt Date: 20090806
  Transmission Date: 20100115
  Serious: Yes (Hospitalization)
  Sender: FDA-Public Use
  Company Number: B0591099A

PATIENT
  Age: 56 Year
  Sex: Female

DRUGS (5)
  1. PAROXETINE HCL [Suspect]
     Route: 065
  2. ISONIAZID [Suspect]
     Indication: PANNICULITIS
     Route: 065
  3. RIFAMPICIN [Concomitant]
     Indication: PANNICULITIS
  4. PYRAZINAMIDE [Concomitant]
     Indication: PANNICULITIS
     Route: 065
  5. PYRIDOXINE [Concomitant]
     Route: 065

REACTIONS (11)
  - AKATHISIA [None]
  - BLOOD CREATINE PHOSPHOKINASE INCREASED [None]
  - CONFUSIONAL STATE [None]
  - COORDINATION ABNORMAL [None]
  - HEADACHE [None]
  - HYPERHIDROSIS [None]
  - HYPERREFLEXIA [None]
  - MYDRIASIS [None]
  - MYOGLOBIN BLOOD INCREASED [None]
  - SEROTONIN SYNDROME [None]
  - TREMOR [None]
